FAERS Safety Report 6546187-6 (Version None)
Quarter: 2010Q1

REPORT INFORMATION
  Report Type: 
  Country: None (occurrence: None)
  Receive Date: 20100119
  Receipt Date: 20100104
  Transmission Date: 20100710
  Serious: Yes (Hospitalization)
  Sender: FDA-Public Use
  Company Number: 2009AC000275

PATIENT
  Age: 82 Year
  Sex: Female

DRUGS (19)
  1. DIGOXIN [Suspect]
     Dosage: 0.25 MG;PO
     Route: 048
     Dates: start: 20050101
  2. IBUPROFEN [Concomitant]
  3. HYDROCODONE BITARTRATE AND ACETAMINOPHEN [Concomitant]
  4. VICODIN [Concomitant]
  5. MECLIZINE [Concomitant]
  6. CLOTRIMAZOLE/BETAMETH CREAM [Concomitant]
  7. AMOXICILLIN/CLAV [Concomitant]
  8. PROMETHAZINE [Concomitant]
  9. PENICILLIN [Concomitant]
  10. NYSTATIN/TRIAMCINOLONE [Concomitant]
  11. ACETAMINOPHEN W/ CODEINE NO. 3 [Concomitant]
  12. PREVACID [Concomitant]
  13. FLUCONAZOLE [Concomitant]
  14. TRIAMCINOLONE [Concomitant]
  15. HYDROXYZINE [Concomitant]
  16. PROPOXYPHENE NAPSYLATE AND ACETAMINOPHEN [Concomitant]
  17. TORADOL [Concomitant]
  18. LIPITOR [Concomitant]
  19. CEPHALEXIN [Concomitant]

REACTIONS (9)
  - ATRIAL FIBRILLATION [None]
  - ECONOMIC PROBLEM [None]
  - HYPERLIPIDAEMIA [None]
  - HYPERTENSION [None]
  - INJURY [None]
  - MUSCULOSKELETAL PAIN [None]
  - MYOCARDIAL INFARCTION [None]
  - PROTHROMBIN TIME PROLONGED [None]
  - SWELLING FACE [None]
